FAERS Safety Report 7554465-7 (Version None)
Quarter: 2011Q2

REPORT INFORMATION
  Report Type: 
  Country: None (occurrence: None)
  Receive Date: 20110617
  Receipt Date: 20110610
  Transmission Date: 20111010
  Serious: Yes (Other)
  Sender: FDA-Public Use
  Company Number: A0930988A

PATIENT
  Sex: Female
  Weight: 79.5 kg

DRUGS (1)
  1. PROMACTA [Suspect]
     Indication: IDIOPATHIC THROMBOCYTOPENIC PURPURA
     Dosage: 75MG PER DAY
     Route: 048
     Dates: start: 20110510, end: 20110530

REACTIONS (3)
  - DRUG INEFFECTIVE [None]
  - TRANSFUSION [None]
  - HAEMORRHAGE [None]
